FAERS Safety Report 19598487 (Version 3)
Quarter: 2022Q2

REPORT INFORMATION
  Report Type: Report from Study
  Country: ES (occurrence: ES)
  Receive Date: 20210722
  Receipt Date: 20220613
  Transmission Date: 20220721
  Serious: Yes (Other)
  Sender: FDA-Public Use
  Company Number: ES-TAKEDA-2021TUS043957

PATIENT
  Age: 6 Year
  Sex: Male

DRUGS (14)
  1. TEDUGLUTIDE [Suspect]
     Active Substance: TEDUGLUTIDE
     Indication: Short-bowel syndrome
     Dosage: 8 MILLIGRAM, QD
     Route: 042
     Dates: start: 20170820
  2. TEDUGLUTIDE [Suspect]
     Active Substance: TEDUGLUTIDE
     Indication: Short-bowel syndrome
     Dosage: 8 MILLIGRAM, QD
     Route: 042
     Dates: start: 20170820
  3. TEDUGLUTIDE [Suspect]
     Active Substance: TEDUGLUTIDE
     Indication: Short-bowel syndrome
     Dosage: 8 MILLIGRAM, QD
     Route: 042
     Dates: start: 20170820
  4. TEDUGLUTIDE [Suspect]
     Active Substance: TEDUGLUTIDE
     Indication: Short-bowel syndrome
     Dosage: 8 MILLIGRAM, QD
     Route: 042
     Dates: start: 20170820
  5. ACETAMINOPHEN [Concomitant]
     Active Substance: ACETAMINOPHEN
     Indication: Abdominal pain
     Dosage: 170 MILLIGRAM
     Route: 048
     Dates: start: 20210212, end: 20210215
  6. URSODIOL [Concomitant]
     Active Substance: URSODIOL
     Indication: Hyperbilirubinaemia
     Dosage: 150 MILLIGRAM, TID
     Route: 048
     Dates: start: 20201110, end: 20210602
  7. FLUTICASONE [Concomitant]
     Active Substance: FLUTICASONE
     Indication: Rhinitis
     Dosage: 27.50 MICROGRAM, QD
     Route: 042
     Dates: start: 20200928, end: 20201123
  8. FLUTICASONE [Concomitant]
     Active Substance: FLUTICASONE
     Dosage: 27.50 MICROGRAM, QD
     Route: 045
     Dates: start: 20200928, end: 20201123
  9. URSODIOL [Concomitant]
     Active Substance: URSODIOL
     Indication: Liver disorder
     Dosage: 150 MILLIGRAM, TID
     Route: 048
     Dates: start: 20201023
  10. VITAMIN A + E [Concomitant]
     Indication: Hypovitaminosis
     Dosage: 1 DOSAGE FORM, QD
     Route: 048
     Dates: start: 20210630
  11. CYANOCOBALAMIN [Concomitant]
     Active Substance: CYANOCOBALAMIN
     Indication: Blood homocysteine
     Dosage: 1 MILLIGRAM, 1/WEEK
     Route: 048
     Dates: start: 20220418
  12. VITAMIN E [Concomitant]
     Active Substance: .ALPHA.-TOCOPHEROL
     Indication: Hypovitaminosis
     Dosage: 50 MILLIGRAM, QD
     Route: 048
     Dates: start: 20220603
  13. VITAMIN A [Concomitant]
     Active Substance: VITAMIN A
     Indication: Hypovitaminosis
     Dosage: 10000 INTERNATIONAL UNIT, 2/MONTH
     Route: 030
     Dates: start: 20220603
  14. METRONIDAZOLE [Concomitant]
     Active Substance: METRONIDAZOLE
     Indication: Bacterial infection
     Dosage: 10 MILLIGRAM/KILOGRAM, BID
     Route: 065
     Dates: start: 20211220

REACTIONS (1)
  - Hyperbilirubinaemia [Recovered/Resolved]

NARRATIVE: CASE EVENT DATE: 20201016
